APPROVED DRUG PRODUCT: ICOSAPENT ETHYL
Active Ingredient: ICOSAPENT ETHYL
Strength: 1GM
Dosage Form/Route: CAPSULE;ORAL
Application: A217656 | Product #002 | TE Code: AB
Applicant: ZYDUS LIFESCIENCES GLOBAL FZE
Approved: Apr 20, 2023 | RLD: No | RS: No | Type: RX